FAERS Safety Report 4346399-6 (Version None)
Quarter: 2004Q2

REPORT INFORMATION
  Report Type: 
  Country: None (occurrence: None)
  Receive Date: 20040426
  Receipt Date: 20040226
  Transmission Date: 20050107
  Serious: No
  Sender: FDA-Public Use
  Company Number: US-GLAXOSMITHKLINE-A0500148A

PATIENT
  Age: 39 Year
  Sex: Female

DRUGS (2)
  1. ZOFRAN [Suspect]
     Indication: NAUSEA
     Dosage: 8MG AS REQUIRED
     Route: 048
     Dates: start: 20040223
  2. PRENATAL VITAMINS [Concomitant]

REACTIONS (2)
  - ANOREXIA [None]
  - DRUG EXPOSURE DURING PREGNANCY [None]
